FAERS Safety Report 12278888 (Version 5)
Quarter: 2021Q1

REPORT INFORMATION
  Report Type: Spontaneous
  Country: CA (occurrence: CA)
  Receive Date: 20160418
  Receipt Date: 20210125
  Transmission Date: 20210419
  Serious: Yes (Hospitalization)
  Sender: FDA-Public Use
  Company Number: CA-ROCHE-1741961

PATIENT
  Age: 48 Year
  Sex: Female

DRUGS (33)
  1. HERCEPTIN [Suspect]
     Active Substance: TRASTUZUMAB
     Route: 042
  2. HYDROCORTISONE. [Concomitant]
     Active Substance: HYDROCORTISONE
     Route: 065
  3. PIPERACILLIN SODIUM;TAZOBACTAM SODIUM [Concomitant]
     Active Substance: PIPERACILLIN SODIUM\TAZOBACTAM SODIUM
  4. DOCETAXEL. [Suspect]
     Active Substance: DOCETAXEL
     Indication: HER2 POSITIVE BREAST CANCER
     Dosage: THERAPY DURATION: 1 DAY
     Route: 042
  5. CITALOPRAM [Concomitant]
     Active Substance: CITALOPRAM HYDROBROMIDE
     Dosage: THERAPY DURATION: 161 DAYS
  6. EMEND [Concomitant]
     Active Substance: APREPITANT
     Route: 065
  7. TYLENOL [Concomitant]
     Active Substance: ACETAMINOPHEN
  8. ERGOCALCIFEROL. [Concomitant]
     Active Substance: ERGOCALCIFEROL
  9. PERTUZUMAB. [Suspect]
     Active Substance: PERTUZUMAB
     Indication: HER2 POSITIVE BREAST CANCER
     Route: 042
  10. DEXAMETHASONE. [Concomitant]
     Active Substance: DEXAMETHASONE
     Dosage: THERAPY DURATION: 108 DAYS
  11. PERJETA [Suspect]
     Active Substance: PERTUZUMAB
     Dosage: THERAPY DURATION: 1 DAY
     Route: 042
  12. TRASTUZUMAB. [Suspect]
     Active Substance: TRASTUZUMAB
     Indication: HER2 POSITIVE BREAST CANCER
     Route: 042
  13. CARBOPLATIN. [Suspect]
     Active Substance: CARBOPLATIN
     Dosage: THERAPY DURATION: 1 DAY
     Route: 042
  14. METOCLOPRAMIDE. [Concomitant]
     Active Substance: METOCLOPRAMIDE
     Indication: PRODUCT USED FOR UNKNOWN INDICATION
  15. TAZOCIN [Concomitant]
     Active Substance: PIPERACILLIN SODIUM\TAZOBACTAM SODIUM
     Route: 042
  16. HERCEPTIN [Suspect]
     Active Substance: TRASTUZUMAB
     Indication: HER2 POSITIVE BREAST CANCER
     Dosage: THERAPY DURATION: 1 DAY
     Route: 042
  17. CARBOPLATIN. [Suspect]
     Active Substance: CARBOPLATIN
     Indication: HER2 POSITIVE BREAST CANCER
     Dosage: THERAPY DURATION: 1 DAY
     Route: 042
  18. MORPHINE [Concomitant]
     Active Substance: MORPHINE
     Route: 065
  19. PERJETA [Suspect]
     Active Substance: PERTUZUMAB
     Dosage: THERAPY DURATION: 1 DAY
     Route: 042
  20. DOCETAXEL. [Suspect]
     Active Substance: DOCETAXEL
     Dosage: THERAPY DURATION: 1 DAY
     Route: 042
  21. LOPERAMIDE [Concomitant]
     Active Substance: LOPERAMIDE
     Indication: PRODUCT USED FOR UNKNOWN INDICATION
  22. OMEPRAZOLE. [Concomitant]
     Active Substance: OMEPRAZOLE
     Dosage: THERAPY DURATION: 12 DAYS
  23. CALCIUM [Concomitant]
     Active Substance: CALCIUM
  24. NEULASTA [Concomitant]
     Active Substance: PEGFILGRASTIM
     Dosage: THERAPY DURATION: 106 DAYS
     Route: 058
  25. OMEPRAZOLE. [Concomitant]
     Active Substance: OMEPRAZOLE
     Indication: PROPHYLAXIS
     Dosage: THERAPY DURATION: 6 DAYS
  26. ZANTAC [Concomitant]
     Active Substance: RANITIDINE HYDROCHLORIDE
  27. SILVER SULFADIAZINE. [Concomitant]
     Active Substance: SILVER SULFADIAZINE
     Route: 065
  28. ACETAMINOPHEN. [Concomitant]
     Active Substance: ACETAMINOPHEN
     Indication: PRODUCT USED FOR UNKNOWN INDICATION
  29. PERJETA [Suspect]
     Active Substance: PERTUZUMAB
     Indication: HER2 POSITIVE BREAST CANCER
     Dosage: SOLUTION INTRAVENOUS
     Route: 042
  30. HERCEPTIN [Suspect]
     Active Substance: TRASTUZUMAB
     Route: 042
  31. ONDANSETRON [Concomitant]
     Active Substance: ONDANSETRON
     Route: 065
  32. RANITIDINE. [Concomitant]
     Active Substance: RANITIDINE
     Route: 065
  33. PEGFILGRASTIM [Concomitant]
     Active Substance: PEGFILGRASTIM

REACTIONS (2)
  - Pulmonary embolism [Recovered/Resolved]
  - Pneumonia [Recovered/Resolved]
